FAERS Safety Report 14196083 (Version 1)
Quarter: 2017Q4

REPORT INFORMATION
  Report Type: Spontaneous
  Country: US (occurrence: None)
  Receive Date: 20171116
  Receipt Date: 20171116
  Transmission Date: 20180321
  Serious: No
  Sender: FDA-Public Use
  Company Number: None

PATIENT
  Sex: Male
  Weight: 78.93 kg

DRUGS (6)
  1. GLYBURIDE. [Concomitant]
     Active Substance: GLYBURIDE
  2. VITAMIN B12 [Concomitant]
     Active Substance: CYANOCOBALAMIN
  3. SIMVASTATIN. [Concomitant]
     Active Substance: SIMVASTATIN
  4. ASPIRIN. [Concomitant]
     Active Substance: ASPIRIN
  5. METAFORMIN [Concomitant]
  6. JANUVIA [Suspect]
     Active Substance: SITAGLIPTIN PHOSPHATE
     Indication: DIABETES MELLITUS
     Route: 048

REACTIONS (1)
  - Pruritus generalised [None]
